FAERS Safety Report 18143344 (Version 1)
Quarter: 2020Q3

REPORT INFORMATION
  Report Type: Spontaneous
  Country: US (occurrence: US)
  Receive Date: 20200813
  Receipt Date: 20200813
  Transmission Date: 20201103
  Serious: Yes (Hospitalization)
  Sender: FDA-Public Use
  Company Number: US-TEVA-2020-US-1812649

PATIENT
  Age: 74 Year
  Sex: Male

DRUGS (8)
  1. OCTOCOG ALFA [Suspect]
     Active Substance: ANTIHEMOPHILIC FACTOR, HUMAN RECOMBINANT
     Dosage: 24000 IU (INTERNATIONAL UNIT) DAILY;
     Route: 065
  2. OCTOCOG ALFA [Suspect]
     Active Substance: ANTIHEMOPHILIC FACTOR, HUMAN RECOMBINANT
     Dosage: 30000 IU (INTERNATIONAL UNIT) DAILY;
     Route: 065
  3. OCTOCOG ALFA [Suspect]
     Active Substance: ANTIHEMOPHILIC FACTOR, HUMAN RECOMBINANT
     Dosage: THERAPY INITIATED ON POSTOPERATIVE DAY 4. HE RECEIVED A TOTAL OF 13000 UNITS IN THE DAY AND AN AD...
     Route: 065
  4. PREDNISONE. [Suspect]
     Active Substance: PREDNISONE
     Indication: ACQUIRED HAEMOPHILIA
     Dosage: 60 MILLIGRAM DAILY;
     Route: 048
  5. OCTOCOG ALFA [Suspect]
     Active Substance: ANTIHEMOPHILIC FACTOR, HUMAN RECOMBINANT
     Dosage: 16000 IU (INTERNATIONAL UNIT) DAILY; THERAPY CONTINUED FROM POSTOPERATIVE DAY 5
     Route: 065
  6. PREDNISONE. [Suspect]
     Active Substance: PREDNISONE
     Dosage: 80 MILLIGRAM DAILY;
     Route: 048
  7. OCTOCOG ALFA [Suspect]
     Active Substance: ANTIHEMOPHILIC FACTOR, HUMAN RECOMBINANT
     Indication: ACQUIRED HAEMOPHILIA
     Dosage: THERAPY INITIATED ON POSTOPERATIVE DAY 4. HE RECEIVED A TOTAL OF 13000 UNITS IN THE DAY AND AN AD...
     Route: 065
  8. RITUXIMAB. [Concomitant]
     Active Substance: RITUXIMAB
     Indication: ACQUIRED HAEMOPHILIA
     Dosage: CONTINUED ON A ONCE WEEKLY BASIS.
     Route: 042

REACTIONS (2)
  - Coagulation factor VIII level increased [Recovering/Resolving]
  - Blood glucose increased [Recovering/Resolving]
